FAERS Safety Report 5446853-X (Version None)
Quarter: 2007Q3

REPORT INFORMATION
  Report Type: 
  Country: None (occurrence: None)
  Receive Date: 20070907
  Receipt Date: 20070904
  Transmission Date: 20080115
  Serious: Yes (Other)
  Sender: FDA-Public Use
  Company Number: US-PFIZER INC-2007074195

PATIENT
  Sex: Female
  Weight: 57.272 kg

DRUGS (3)
  1. CHANTIX [Suspect]
     Indication: SMOKING CESSATION THERAPY
  2. ZYRTEC [Suspect]
     Indication: SWELLING FACE
  3. ALL OTHER NON-THERAPEUTIC PRODUCTS [Suspect]
     Route: 061
     Dates: start: 20070902, end: 20070902

REACTIONS (2)
  - EYE SWELLING [None]
  - SWELLING FACE [None]
